FAERS Safety Report 18835740 (Version 1)
Quarter: 2021Q1

REPORT INFORMATION
  Report Type: Spontaneous
  Country: US (occurrence: US)
  Receive Date: 20210203
  Receipt Date: 20210203
  Transmission Date: 20210419
  Serious: Yes (Life-Threatening, Hospitalization)
  Sender: FDA-Public Use
  Company Number: None

PATIENT
  Age: 13 Year
  Sex: Female

DRUGS (4)
  1. LIBERTY CBD TINCTURE, JACKSON^S COURAGE [Suspect]
     Active Substance: CANNABIDIOL\HERBALS
     Indication: ANXIETY
     Dosage: ?          OTHER FREQUENCY:AS NEEDED;?
     Route: 002
     Dates: start: 20191115, end: 20200208
  2. LIBERTY CBD TINCTURE, JACKSON^S COURAGE [Suspect]
     Active Substance: CANNABIDIOL\HERBALS
     Indication: NEOPLASM MALIGNANT
     Dosage: ?          OTHER FREQUENCY:AS NEEDED;?
     Route: 002
     Dates: start: 20191115, end: 20200208
  3. LIBERTY CBD TINCTURE, JACKSON^S COURAGE [Suspect]
     Active Substance: CANNABIDIOL\HERBALS
     Indication: DEPRESSION
     Dosage: ?          OTHER FREQUENCY:AS NEEDED;?
     Route: 002
     Dates: start: 20191115, end: 20200208
  4. LIBERTY CBD TINCTURE, JACKSON^S COURAGE [Suspect]
     Active Substance: CANNABIDIOL\HERBALS
     Indication: MUSCLE SPASMS
     Dosage: ?          OTHER FREQUENCY:AS NEEDED;?
     Route: 002
     Dates: start: 20191115, end: 20200208

REACTIONS (2)
  - Toxicity to various agents [None]
  - Generalised tonic-clonic seizure [None]

NARRATIVE: CASE EVENT DATE: 20200208
